FAERS Safety Report 8548384-7 (Version None)
Quarter: 2012Q3

REPORT INFORMATION
  Report Type: 
  Country: None (occurrence: None)
  Receive Date: 20120730
  Receipt Date: 20120720
  Transmission Date: 20120928
  Serious: Yes (Other)
  Sender: FDA-Public Use
  Company Number: JP-JNJFOC-20120203494

PATIENT
  Age: 71 Year
  Sex: Male
  Weight: 52 kg

DRUGS (21)
  1. ASPARA-K [Suspect]
     Indication: ELECTROLYTE SUBSTITUTION THERAPY
     Route: 065
     Dates: start: 20111231, end: 20120104
  2. CIPROFLOXACIN HCL [Suspect]
     Indication: POUCHITIS
     Route: 065
     Dates: start: 20111222
  3. CIPROFLOXACIN HCL [Suspect]
     Route: 065
     Dates: start: 20120105
  4. PREDONEMA [Concomitant]
     Route: 065
  5. REMICADE [Suspect]
     Route: 042
     Dates: start: 20111221
  6. REMICADE [Suspect]
     Route: 042
     Dates: start: 20110916
  7. CIPROFLOXACIN HCL [Suspect]
     Route: 065
     Dates: start: 20111222
  8. ROHYPNOL [Concomitant]
     Route: 042
  9. REMICADE [Suspect]
     Indication: COLITIS ULCERATIVE
     Route: 042
     Dates: start: 20120104
  10. REMICADE [Suspect]
     Route: 042
     Dates: start: 20111221
  11. INTRALIPID 10% [Suspect]
     Indication: NUTRITIONAL SUPPORT
     Route: 065
     Dates: start: 20110811
  12. CIPROFLOXACIN HCL [Suspect]
     Indication: COLITIS ULCERATIVE
     Route: 065
     Dates: start: 20120105
  13. CEFMETAZON [Suspect]
     Indication: INFECTION
     Route: 065
     Dates: start: 20111231, end: 20120109
  14. REMICADE [Suspect]
     Indication: POUCHITIS
     Route: 042
     Dates: start: 20120104
  15. PENTASA [Concomitant]
     Route: 065
  16. AMINO ACID INJ [Suspect]
     Indication: NUTRITIONAL SUPPORT
     Route: 065
     Dates: start: 20120123
  17. MORPHINE HYDROCHLORIDE [Suspect]
     Indication: POSTOPERATIVE ANALGESIA
     Dosage: DOSAGE 0.5 VIALX1 TO 4 TIMES
     Route: 030
     Dates: start: 20111228, end: 20120104
  18. LANSOPRAZOLE [Concomitant]
     Route: 048
  19. REMICADE [Suspect]
     Route: 042
     Dates: start: 20110916
  20. AMINO ACID INJ [Suspect]
     Route: 065
     Dates: start: 20111222
  21. FULCALIQ [Suspect]
     Indication: NUTRITIONAL SUPPORT
     Route: 065
     Dates: start: 20111231, end: 20120104

REACTIONS (8)
  - FLUSHING [None]
  - SURGERY [None]
  - ABDOMINAL DISCOMFORT [None]
  - DYSPNOEA [None]
  - INFUSION RELATED REACTION [None]
  - PALPITATIONS [None]
  - ARRHYTHMIA [None]
  - DIZZINESS [None]
